FAERS Safety Report 5814294-9 (Version None)
Quarter: 2008Q3

REPORT INFORMATION
  Report Type: 
  Country: None (occurrence: None)
  Receive Date: 20080717
  Receipt Date: 20080714
  Transmission Date: 20090109
  Serious: Yes (Other)
  Sender: FDA-Public Use
  Company Number: US-ELI_LILLY_AND_COMPANY-US200807002676

PATIENT
  Sex: Male

DRUGS (2)
  1. HUMALOG [Suspect]
  2. PREDNISONE TAB [Concomitant]

REACTIONS (1)
  - NEOPLASM MALIGNANT [None]
